FAERS Safety Report 5163823-X (Version None)
Quarter: 2006Q4

REPORT INFORMATION
  Report Type: 
  Country: None (occurrence: None)
  Receive Date: 20061124
  Receipt Date: 20061113
  Transmission Date: 20070319
  Serious: Yes (Other)
  Sender: FDA-Public Use
  Company Number: 2006047963

PATIENT
  Age: 74 Year
  Sex: Female
  Weight: 67.586 kg

DRUGS (6)
  1. CELEBREX [Suspect]
     Indication: PAIN
     Dosage: 200 MG (200 MG, 1 IN 1 D), ORAL
     Route: 048
     Dates: start: 20020101
  2. ACCUPRIL [Suspect]
     Indication: HYPERTENSION
     Dosage: 10 MG (10 MG, 1 IN 1 D), ORAL
     Route: 048
     Dates: start: 20020101
  3. QUINAPRIL [Suspect]
     Dosage: (10 MG)
  4. VITAMIN C (VITAMIN C) [Concomitant]
  5. VITAMIN E [Concomitant]
  6. CALTRATE (CALCIUM CARBONATE) [Concomitant]

REACTIONS (9)
  - ASTHENIA [None]
  - CARDIOVASCULAR DISORDER [None]
  - FEELING ABNORMAL [None]
  - GAIT DISTURBANCE [None]
  - HIP ARTHROPLASTY [None]
  - NAUSEA [None]
  - RASH [None]
  - TREATMENT NONCOMPLIANCE [None]
  - WALKING AID USER [None]
